FAERS Safety Report 13068406 (Version 2)
Quarter: 2017Q2

REPORT INFORMATION
  Report Type: Report from Study
  Country: AU (occurrence: AU)
  Receive Date: 20161228
  Receipt Date: 20170511
  Transmission Date: 20170830
  Serious: Yes (Hospitalization, Other)
  Sender: FDA-Public Use
  Company Number: AU-AMGEN-AUSSP2016182178

PATIENT
  Age: 67 Year
  Sex: Male
  Weight: 96 kg

DRUGS (6)
  1. ATACAND [Concomitant]
     Active Substance: CANDESARTAN CILEXETIL
     Indication: CORONARY ARTERY DISEASE
     Dosage: 8 MG, UNK
     Route: 048
  2. REPATHA [Suspect]
     Active Substance: EVOLOCUMAB
     Indication: TYPE IIA HYPERLIPIDAEMIA
     Dosage: 140 MG, Q2WK
     Route: 058
     Dates: start: 20160906
  3. DILATREND [Concomitant]
     Active Substance: CARVEDILOL
     Indication: LEFT VENTRICULAR DYSFUNCTION
     Dosage: 6.25 MG, BID
     Route: 048
  4. APIXABAN [Concomitant]
     Active Substance: APIXABAN
     Indication: CORONARY ARTERY DISEASE
     Dosage: 5 MG, BID
     Route: 048
  5. LASIX [Concomitant]
     Active Substance: FUROSEMIDE
     Indication: LEFT VENTRICULAR DYSFUNCTION
     Dosage: 40 MG, QD
     Route: 048
  6. SPIRACTON [Concomitant]
     Active Substance: SPIRONOLACTONE
     Indication: LEFT VENTRICULAR DYSFUNCTION
     Dosage: 12.5 MG, QD
     Route: 048

REACTIONS (1)
  - Cholecystitis acute [Recovering/Resolving]

NARRATIVE: CASE EVENT DATE: 20161217
